FAERS Safety Report 4540589-5 (Version None)
Quarter: 2004Q4

REPORT INFORMATION
  Report Type: 
  Country: None (occurrence: None)
  Receive Date: 20041228
  Receipt Date: 20041228
  Transmission Date: 20050328
  Serious: Yes (Other)
  Sender: FDA-Public Use
  Company Number: None

PATIENT
  Sex: Female
  Weight: 56.246 kg

DRUGS (4)
  1. GABAPENTIN [Suspect]
     Indication: BACK PAIN
     Dosage: 300 MG PO QHS
     Route: 048
  2. GLIDURIDE [Concomitant]
  3. NEXIUM [Concomitant]
  4. FOSAMOX [Concomitant]

REACTIONS (3)
  - HEADACHE [None]
  - PAIN [None]
  - PHARMACEUTICAL PRODUCT COMPLAINT [None]
